FAERS Safety Report 15430383 (Version 1)
Quarter: 2018Q3

REPORT INFORMATION
  Report Type: Spontaneous
  Country: CN (occurrence: CN)
  Receive Date: 20180926
  Receipt Date: 20180926
  Transmission Date: 20181010
  Serious: Yes (Other)
  Sender: FDA-Public Use
  Company Number: CN-PENTEC HEALTH-2018PEN00048

PATIENT

DRUGS (1)
  1. VANCOMYCIN HYDROCHLORIDE. [Suspect]
     Active Substance: VANCOMYCIN HYDROCHLORIDE
     Indication: INFECTION
     Dosage: 1000 MG, EVERY 12 HOURS
     Route: 042

REACTIONS (2)
  - Renal injury [Unknown]
  - Septic shock [Unknown]
